FAERS Safety Report 9063788 (Version 1)
Quarter: 2013Q1

REPORT INFORMATION
  Report Type: Spontaneous
  Country: AR (occurrence: AR)
  Receive Date: 20130213
  Receipt Date: 20130213
  Transmission Date: 20140127
  Serious: Yes (Other)
  Sender: FDA-Public Use
  Company Number: AR-PFIZER INC-2013014755

PATIENT
  Age: 15 Year
  Sex: Male

DRUGS (1)
  1. GENOTROPIN [Suspect]
     Indication: FOETAL GROWTH RESTRICTION
     Dosage: 1.5-2 MG 7X/WEEK
     Route: 058
     Dates: start: 20101221

REACTIONS (5)
  - Ear infection [Recovered/Resolved]
  - Oral herpes [Recovered/Resolved]
  - Tonsillitis [Recovered/Resolved]
  - Stomatitis [Recovered/Resolved]
  - Pyrexia [Recovered/Resolved]
